FAERS Safety Report 4977430-2 (Version None)
Quarter: 2006Q2

REPORT INFORMATION
  Report Type: 
  Country: None (occurrence: None)
  Receive Date: 20060413
  Receipt Date: 20060403
  Transmission Date: 20061013
  Serious: Yes (Death, Hospitalization)
  Sender: FDA-Public Use
  Company Number: S06-USA-00510-01

PATIENT
  Age: 74 Year
  Sex: Female
  Weight: 68.0396 kg

DRUGS (31)
  1. LEXAPRO [Suspect]
     Indication: DEPRESSION
     Dosage: 10 MG QD PO
     Route: 048
     Dates: start: 20060112, end: 20060204
  2. INSULIN (NOS) [Concomitant]
  3. CHOLESTEROL MEDICATION (NOS) [Concomitant]
  4. CONGESTIVE HEART FAILURE MEDICATION [Concomitant]
  5. ASPIRIN [Concomitant]
  6. PLAVIX [Concomitant]
  7. IMDUR [Concomitant]
  8. LOVASTATIN [Concomitant]
  9. COREG [Concomitant]
  10. DIGOXIN [Concomitant]
  11. PROCRIT [Concomitant]
  12. FERROUS SULFATE TAB [Concomitant]
  13. HUMIBID (GUAIFENESIN) [Concomitant]
  14. ROCEPHIN [Concomitant]
  15. ZITHROMAX [Concomitant]
  16. LASIX [Concomitant]
  17. PROTONIX [Concomitant]
  18. OS-CAL PLUS VITAMIN D (CALCIUM CARBONATE/VITAMIN D) [Concomitant]
  19. REGLAN [Concomitant]
  20. VASOTEC [Concomitant]
  21. LANTUS [Concomitant]
  22. DEMADEX [Concomitant]
  23. FLONASE [Concomitant]
  24. BUMEX [Concomitant]
  25. HYCODAN [Concomitant]
  26. AVELOX [Concomitant]
  27. NOVOLIN N [Concomitant]
  28. HYDRALAZINE [Concomitant]
  29. FOLATE [Concomitant]
  30. NIASPAN [Concomitant]
  31. KEFLEX [Concomitant]

REACTIONS (38)
  - ABDOMINAL PAIN UPPER [None]
  - ANXIETY [None]
  - AORTIC ARTERIOSCLEROSIS [None]
  - ASTHENIA [None]
  - ATONIC URINARY BLADDER [None]
  - BLOOD PRESSURE SYSTOLIC INCREASED [None]
  - CARDIAC FAILURE CONGESTIVE [None]
  - CARDIOMEGALY [None]
  - CONDITION AGGRAVATED [None]
  - CONFUSIONAL STATE [None]
  - CORONARY ARTERY DISEASE [None]
  - DECREASED APPETITE [None]
  - DISORIENTATION [None]
  - FATIGUE [None]
  - FORMICATION [None]
  - GASTROOESOPHAGEAL REFLUX DISEASE [None]
  - HEART RATE DECREASED [None]
  - HEART SOUNDS ABNORMAL [None]
  - HYPOXIA [None]
  - INSOMNIA [None]
  - LOBAR PNEUMONIA [None]
  - MENTAL STATUS CHANGES [None]
  - MUSCLE TWITCHING [None]
  - NAUSEA [None]
  - OSTEOPOROSIS [None]
  - PLEURAL EFFUSION [None]
  - PULMONARY OEDEMA [None]
  - RENAL ARTERY STENOSIS [None]
  - RENAL FAILURE [None]
  - RENAL IMPAIRMENT [None]
  - RESPIRATORY FAILURE [None]
  - RESTLESSNESS [None]
  - RHINITIS ALLERGIC [None]
  - STARING [None]
  - TREMOR [None]
  - URINARY RETENTION [None]
  - VOMITING [None]
  - WEIGHT INCREASED [None]
